APPROVED DRUG PRODUCT: ETHAMBUTOL HYDROCHLORIDE
Active Ingredient: ETHAMBUTOL HYDROCHLORIDE
Strength: 100MG
Dosage Form/Route: TABLET;ORAL
Application: A075095 | Product #001 | TE Code: AB
Applicant: EPIC PHARMA LLC
Approved: Nov 30, 1999 | RLD: No | RS: No | Type: RX